FAERS Safety Report 10464334 (Version 1)
Quarter: 2014Q3

REPORT INFORMATION
  Report Type: Spontaneous
  Country: US (occurrence: US)
  Receive Date: 20140919
  Receipt Date: 20140919
  Transmission Date: 20150326
  Serious: Yes (Death, Hospitalization)
  Sender: FDA-Public Use
  Company Number: US-TAKEDA-2014TUS008868

PATIENT
  Age: 58 Year
  Sex: Female

DRUGS (11)
  1. CYCLOSPORINE. [Suspect]
     Active Substance: CYCLOSPORINE
     Indication: GOUT
     Dosage: SINGLE 0.6 MG DOSE TO BE REPEATED NO EARLIER THAN 3 DAYS
     Route: 065
  2. COLCHICINE. [Suspect]
     Active Substance: COLCHICINE
     Indication: GOUT
     Dosage: 0.6 MG, BID
     Route: 065
  3. BUMETANIDE. [Concomitant]
     Active Substance: BUMETANIDE
  4. MIRTAZAPINE. [Concomitant]
     Active Substance: MIRTAZAPINE
  5. PREDNISONE. [Concomitant]
     Active Substance: PREDNISONE
  6. LEVOTHYROXINE [Concomitant]
     Active Substance: LEVOTHYROXINE
  7. PREMARIN [Concomitant]
     Active Substance: ESTROGENS, CONJUGATED
  8. FLURAZEPAM [Concomitant]
     Active Substance: FLURAZEPAM\FLURAZEPAM HYDROCHLORIDE
  9. GABAPENTIN. [Concomitant]
     Active Substance: GABAPENTIN
  10. CLONAZEPAM. [Concomitant]
     Active Substance: CLONAZEPAM
  11. OXYCODONE [Concomitant]
     Active Substance: OXYCODONE

REACTIONS (3)
  - Drug interaction [Unknown]
  - Toxicity to various agents [Unknown]
  - Multi-organ failure [Fatal]
